FAERS Safety Report 8915432 (Version 3)
Quarter: 2013Q1

REPORT INFORMATION
  Report Type: Spontaneous
  Country: US (occurrence: US)
  Receive Date: 20121119
  Receipt Date: 20130201
  Transmission Date: 20140127
  Serious: Yes (Death, Other)
  Sender: FDA-Public Use
  Company Number: US-PFIZER INC-2012286820

PATIENT
  Age: 76 Year
  Sex: Female

DRUGS (1)
  1. RAPAMUNE [Suspect]
     Indication: LIVER TRANSPLANT
     Dosage: 1 MG, 1X/DAY
     Dates: start: 20070806

REACTIONS (3)
  - Death [Fatal]
  - Liver disorder [Unknown]
  - Off label use [Unknown]
